FAERS Safety Report 5823138-0 (Version None)
Quarter: 2008Q3

REPORT INFORMATION
  Report Type: 
  Country: None (occurrence: None)
  Receive Date: 20080724
  Receipt Date: 20080724
  Transmission Date: 20090109
  Serious: Yes (Hospitalization)
  Sender: FDA-Public Use
  Company Number: None

PATIENT
  Age: 67 Year
  Sex: Male
  Weight: 90.2658 kg

DRUGS (3)
  1. TARCEVA [Suspect]
     Indication: MALIGNANT PALATE NEOPLASM
     Dosage: 150MG PO QD
     Route: 048
     Dates: start: 20071204, end: 20080103
  2. TARCEVA [Suspect]
     Indication: SQUAMOUS CELL CARCINOMA
     Dosage: 150MG PO QD
     Route: 048
     Dates: start: 20071204, end: 20080103
  3. INTRA-ARTERIAL CISPLATIN [Concomitant]

REACTIONS (2)
  - BODY TEMPERATURE INCREASED [None]
  - WHITE BLOOD CELL COUNT INCREASED [None]
